FAERS Safety Report 13508438 (Version 1)
Quarter: 2017Q2

REPORT INFORMATION
  Report Type: Spontaneous
  Country: US (occurrence: US)
  Receive Date: 20170503
  Receipt Date: 20170503
  Transmission Date: 20170830
  Serious: No
  Sender: FDA-Public Use
  Company Number: US-CIPLA LTD.-2017US04418

PATIENT

DRUGS (7)
  1. FOSINOPRIL SODIUM AND HYDROCHLORTHAIZID INVAGEN PHARMACEUTICALS [Suspect]
     Active Substance: FOSINOPRIL SODIUM\HYDROCHLOROTHIAZIDE
     Indication: HYPERTENSION
     Dosage: 10/12.5 MG, QD
     Route: 065
  2. PREVACID [Concomitant]
     Active Substance: LANSOPRAZOLE
     Indication: ULCER
     Dosage: 15 MG, BID
     Route: 065
  3. SYNTHROID [Concomitant]
     Active Substance: LEVOTHYROXINE SODIUM
     Indication: HYPOTHYROIDISM
     Dosage: 137 MCG, QD
     Route: 065
  4. FOSINOPRIL SODIUM AND HYDROCHLORTHAIZID INVAGEN PHARMACEUTICALS [Suspect]
     Active Substance: FOSINOPRIL SODIUM\HYDROCHLOROTHIAZIDE
     Dosage: 10/12.5 MG, QD
     Route: 065
     Dates: start: 201702
  5. ATORVASTATIN [Suspect]
     Active Substance: ATORVASTATIN
     Indication: HYPERCHOLESTEROLAEMIA
     Dosage: 20 MG, QD
     Route: 065
  6. CLONIDINE. [Concomitant]
     Active Substance: CLONIDINE
     Indication: HYPERTENSION
     Dosage: 0.1 MG, BID
     Route: 065
  7. PEPCID [Concomitant]
     Active Substance: FAMOTIDINE
     Indication: ULCER
     Dosage: 10 MG, BID
     Route: 065

REACTIONS (1)
  - Concomitant disease aggravated [Not Recovered/Not Resolved]
